FAERS Safety Report 26133420 (Version 2)
Quarter: 2025Q4

REPORT INFORMATION
  Report Type: Spontaneous
  Country: JP (occurrence: JP)
  Receive Date: 20251209
  Receipt Date: 20251215
  Transmission Date: 20260117
  Serious: Yes (Other)
  Sender: MERCK SHARP & DOHME LLC
  Company Number: JP-009507513-2357647

PATIENT
  Age: 67 Year
  Sex: Male

DRUGS (5)
  1. KEYTRUDA [Suspect]
     Active Substance: PEMBROLIZUMAB
     Indication: Head and neck cancer
     Route: 065
  2. CISPLATIN [Suspect]
     Active Substance: CISPLATIN
  3. FLUOROURACIL [Suspect]
     Active Substance: FLUOROURACIL
  4. PACLITAXEL [Suspect]
     Active Substance: PACLITAXEL
     Indication: PD-L1 positive cancer
  5. CETUXIMAB [Suspect]
     Active Substance: CETUXIMAB
     Indication: PD-L1 positive cancer

REACTIONS (3)
  - Pneumonitis [Unknown]
  - Blindness unilateral [Unknown]
  - Swelling face [Recovering/Resolving]
